FAERS Safety Report 6578335-6 (Version None)
Quarter: 2010Q1

REPORT INFORMATION
  Report Type: 
  Country: None (occurrence: None)
  Receive Date: 20100211
  Receipt Date: 20100203
  Transmission Date: 20100710
  Serious: Yes (Other)
  Sender: FDA-Public Use
  Company Number: JP-ROCHE-657367

PATIENT
  Sex: Male

DRUGS (5)
  1. AVASTIN [Suspect]
     Indication: RECTAL CANCER RECURRENT
     Route: 041
     Dates: end: 20090911
  2. IRINOTECAN HYDROCHLORIDE [Suspect]
     Indication: RECTAL CANCER RECURRENT
     Route: 041
     Dates: end: 20090911
  3. 5-FU [Suspect]
     Indication: RECTAL CANCER RECURRENT
     Route: 040
     Dates: end: 20090911
  4. 5-FU [Suspect]
     Route: 041
     Dates: end: 20090911
  5. LEVOFOLINATE [Suspect]
     Indication: RECTAL CANCER RECURRENT
     Route: 041
     Dates: end: 20090911

REACTIONS (1)
  - LEUKOENCEPHALOPATHY [None]
